FAERS Safety Report 5023649-4 (Version None)
Quarter: 2006Q2

REPORT INFORMATION
  Report Type: 
  Country: None (occurrence: None)
  Receive Date: 20060606
  Receipt Date: 20060524
  Transmission Date: 20061013
  Serious: Yes (Hospitalization)
  Sender: FDA-Public Use
  Company Number: FR200605006000

PATIENT
  Age: 40 Year
  Sex: Female

DRUGS (2)
  1. PROZAC [Suspect]
     Indication: DEPRESSION
     Dosage: 20 MG, DAILY, (1/D), ORAL
     Route: 048
     Dates: start: 20051015, end: 20051201
  2. DAFLON (DIOSMIN) [Concomitant]

REACTIONS (1)
  - ANGIONEUROTIC OEDEMA [None]
